FAERS Safety Report 19401147 (Version 2)
Quarter: 2021Q2

REPORT INFORMATION
  Report Type: Spontaneous
  Country: FR (occurrence: FR)
  Receive Date: 20210611
  Receipt Date: 20210614
  Transmission Date: 20210717
  Serious: Yes (Hospitalization)
  Sender: FDA-Public Use
  Company Number: FR-JNJFOC-20210619254

PATIENT
  Age: 64 Year
  Sex: Male

DRUGS (1)
  1. DUROGESIC [Suspect]
     Active Substance: FENTANYL
     Indication: BACK PAIN
     Dosage: 1 DISPOSITIVE 1 TIME PER DAY AT NOON.?DUROGESIC 25 UG/HOUR (4.2 MG/10.5 CM2)
     Route: 062
     Dates: start: 20200920, end: 20201001

REACTIONS (2)
  - Faecaloma [Recovered/Resolved]
  - Discoloured vomit [Recovered/Resolved]

NARRATIVE: CASE EVENT DATE: 20201001
